FAERS Safety Report 7691441-8 (Version None)
Quarter: 2011Q3

REPORT INFORMATION
  Report Type: 
  Country: None (occurrence: None)
  Receive Date: 20110818
  Receipt Date: 20110815
  Transmission Date: 20111222
  Serious: Yes (Death, Hospitalization)
  Sender: FDA-Public Use
  Company Number: PHEH2011US01548

PATIENT
  Sex: Female
  Weight: 50 kg

DRUGS (2)
  1. SIMVASTATIN [Concomitant]
     Dosage: UNK UKN, UNK
  2. EXJADE [Suspect]
     Dosage: 1000 MG, QD
     Route: 048

REACTIONS (4)
  - LIVER FUNCTION TEST ABNORMAL [None]
  - ACUTE MYELOID LEUKAEMIA [None]
  - MALAISE [None]
  - PYREXIA [None]
